FAERS Safety Report 19726078 (Version 3)
Quarter: 2022Q2

REPORT INFORMATION
  Report Type: Report from Study
  Country: FR (occurrence: FR)
  Receive Date: 20210819
  Receipt Date: 20220512
  Transmission Date: 20220720
  Serious: Yes (Other)
  Sender: FDA-Public Use
  Company Number: FR-BRISTOL-MYERS SQUIBB COMPANY-BMS-2021-079852

PATIENT
  Age: 84 Year
  Sex: Female

DRUGS (1)
  1. NIVOLUMAB [Suspect]
     Active Substance: NIVOLUMAB
     Indication: Head and neck cancer
     Dosage: 160 MILLIGRAM, Q2WK
     Route: 042
     Dates: start: 20201102

REACTIONS (4)
  - Hypokalaemia [Recovered/Resolved]
  - Diarrhoea [Unknown]
  - Oral fungal infection [Recovered/Resolved]
  - Prescribed underdose [Unknown]

NARRATIVE: CASE EVENT DATE: 20210111
